FAERS Safety Report 4819051-8 (Version None)
Quarter: 2005Q4

REPORT INFORMATION
  Report Type: 
  Country: None (occurrence: None)
  Receive Date: 20051101
  Receipt Date: 20051101
  Transmission Date: 20060501
  Serious: Yes (Hospitalization)
  Sender: FDA-Public Use
  Company Number: None

PATIENT
  Sex: Male
  Weight: 73.9363 kg

DRUGS (24)
  1. NPH INSULIN [Suspect]
     Indication: DIABETES MELLITUS
     Dosage: 35 UNITS AM  25 UNITS PM
  2. METFORMIN 850 MG BID [Suspect]
     Indication: DIABETES MELLITUS
     Dosage: 850 MG BID RENEWED
     Dates: start: 20050322, end: 20050808
  3. ACCU-CHEK COMFORT CV (GLUCOSE) TEST STRIP [Concomitant]
  4. ACETAMINOPHEN [Concomitant]
  5. ALCOHOL PREP PAD [Concomitant]
  6. ASPIRIN [Concomitant]
  7. ATENOLOL [Concomitant]
  8. CLOTRIMAZOLE [Concomitant]
  9. COLESTIPOL HCL [Concomitant]
  10. CONDOM LATEX LUBRICATED [Concomitant]
  11. DIPHENHYDRAMINE HCL [Concomitant]
  12. GLUCOSE [Concomitant]
  13. IBUPROFEN [Concomitant]
  14. HUMULIN N [Concomitant]
  15. INSULIN SYRG [Concomitant]
  16. KETOCONAZOLE [Concomitant]
  17. LANCET,TECHLITE [Concomitant]
  18. MAGNEXIUM OXIDE [Concomitant]
  19. MENTHOL 10%/METHYL SALICYLATE [Concomitant]
  20. METFORMIN HCL [Concomitant]
  21. MULTI-VITAMIN [Concomitant]
  22. SERTRALINE HCL [Concomitant]
  23. TERAZOSIN HCL [Concomitant]
  24. TUBERCULIN SYRINGE [Concomitant]

REACTIONS (1)
  - HYPOGLYCAEMIA [None]
